FAERS Safety Report 13188649 (Version 1)
Quarter: 2017Q1

REPORT INFORMATION
  Report Type: Spontaneous
  Country: US (occurrence: US)
  Receive Date: 20170204
  Receipt Date: 20170204
  Transmission Date: 20170428
  Serious: Yes (Disabling, Other)
  Sender: FDA-Public Use
  Company Number: None

PATIENT
  Age: 46 Year
  Sex: Female
  Weight: 61.65 kg

DRUGS (7)
  1. TRAZODONE [Concomitant]
     Active Substance: TRAZODONE HYDROCHLORIDE
  2. KLONOPIN [Concomitant]
     Active Substance: CLONAZEPAM
  3. SERTRALINE [Suspect]
     Active Substance: SERTRALINE HYDROCHLORIDE
     Indication: POST-TRAUMATIC STRESS DISORDER
     Dosage: ?          QUANTITY:30 TABLET(S);?
     Route: 048
     Dates: start: 20161109, end: 20170129
  4. PRAZOSIN [Concomitant]
     Active Substance: PRAZOSIN
  5. VITAMIN D [Concomitant]
     Active Substance: CHOLECALCIFEROL
  6. PROPANOLOL [Concomitant]
     Active Substance: PROPRANOLOL HYDROCHLORIDE
  7. VITAMIN B12 [Concomitant]
     Active Substance: CYANOCOBALAMIN

REACTIONS (15)
  - Tachycardia [None]
  - Nausea [None]
  - Vomiting [None]
  - Diarrhoea [None]
  - Hypoaesthesia [None]
  - Amnesia [None]
  - Immune system disorder [None]
  - Tremor [None]
  - Paraesthesia [None]
  - Fatigue [None]
  - Dyspnoea [None]
  - Weight decreased [None]
  - Pain [None]
  - Chest pain [None]
  - Hypertension [None]

NARRATIVE: CASE EVENT DATE: 20161130
